FAERS Safety Report 6347676-X (Version None)
Quarter: 2009Q3

REPORT INFORMATION
  Report Type: 
  Country: None (occurrence: None)
  Receive Date: 20090910
  Receipt Date: 20090908
  Transmission Date: 20100115
  Serious: Yes (Hospitalization, Other)
  Sender: FDA-Public Use
  Company Number: US-BRISTOL-MYERS SQUIBB COMPANY-14770960

PATIENT
  Age: 51 Year
  Sex: Female
  Weight: 110 kg

DRUGS (12)
  1. IXEMPRA KIT [Suspect]
     Indication: BREAST CANCER METASTATIC
     Dosage: 1ST DOSE:25AUG09;RECENT INF:02SEP2009.
     Dates: start: 20090825
  2. XELODA [Concomitant]
     Dosage: RECEIVED 2WKS PRIOR TO IXEMPRA INF AND STOPPED 2 WEEKS PRIOR TO IXEMPRA.
  3. TAGAMET [Concomitant]
     Indication: PREMEDICATION
     Route: 042
  4. BENADRYL [Concomitant]
     Indication: PREMEDICATION
     Route: 042
  5. ALOXI [Concomitant]
     Indication: PREMEDICATION
     Route: 042
  6. DECADRON [Concomitant]
     Indication: PREMEDICATION
     Route: 042
  7. FENTANYL TRANSDERMAL SYSTEM [Concomitant]
  8. OXYCONTIN [Concomitant]
  9. XANAX [Concomitant]
     Dosage: AT BEDTIME
  10. PROZAC [Concomitant]
  11. VICODIN [Concomitant]
     Dosage: 1DF=1-2TABS;PRN
  12. ZOMETA [Concomitant]
     Route: 042

REACTIONS (4)
  - NEUTROPENIA [None]
  - RASH PUSTULAR [None]
  - SKIN FISSURES [None]
  - STOMATITIS [None]
